FAERS Safety Report 4635967-X (Version None)
Quarter: 2005Q2

REPORT INFORMATION
  Report Type: 
  Country: None (occurrence: None)
  Receive Date: 20050415
  Receipt Date: 20050404
  Transmission Date: 20051028
  Serious: Yes (Hospitalization)
  Sender: FDA-Public Use
  Company Number: FR-BRISTOL-MYERS SQUIBB COMPANY-12921722

PATIENT
  Age: 65 Year
  Sex: Male
  Weight: 45 kg

DRUGS (7)
  1. VIDEX EC [Suspect]
     Indication: HIV INFECTION
     Route: 048
     Dates: start: 20000515, end: 20041215
  2. INVIRASE [Suspect]
     Route: 048
     Dates: start: 20030101, end: 20041215
  3. NORVIR [Suspect]
     Dosage: INTERRUPTED FROM 12-JAN-2005 UNTIL 15-FEB-2005
     Dates: start: 20000515
  4. ZIAGEN [Suspect]
     Dates: start: 20000515, end: 20050107
  5. MACROLIN [Suspect]
     Dosage: INTERRUPTED FROM JUL-2001 TO MAY-2003
     Dates: start: 20001101, end: 20030801
  6. EPIVIR [Concomitant]
     Dates: start: 20041216, end: 20050115
  7. TELZIR [Concomitant]
     Dosage: INTERRUPTED FROM 12-JAN-2005 UNTIL 15-FEB-2005
     Dates: start: 20041216

REACTIONS (7)
  - ASCITES [None]
  - DIARRHOEA [None]
  - FALL [None]
  - GAIT DISTURBANCE [None]
  - NEUROPATHY PERIPHERAL [None]
  - PORTAL HYPERTENSION [None]
  - VARICES OESOPHAGEAL [None]
